FAERS Safety Report 21509552 (Version 1)
Quarter: 2022Q4

REPORT INFORMATION
  Report Type: Spontaneous
  Country: US (occurrence: None)
  Receive Date: 20221026
  Receipt Date: 20221026
  Transmission Date: 20230113
  Serious: Yes (Hospitalization)
  Sender: FDA-Public Use
  Company Number: None

PATIENT
  Age: 67 Year
  Sex: Male

DRUGS (5)
  1. ABECMA [Suspect]
     Active Substance: IDECABTAGENE VICLEUCEL
     Indication: Plasma cell myeloma
     Dosage: OTHER FREQUENCY : ONCE;?
     Route: 042
     Dates: start: 20220815, end: 20220815
  2. TOCILIZUMAB [Concomitant]
     Active Substance: TOCILIZUMAB
  3. DEXAMETHASONE [Concomitant]
     Active Substance: DEXAMETHASONE
  4. ANAKINRA [Concomitant]
     Active Substance: ANAKINRA
  5. METHOTREXATE [Concomitant]
     Active Substance: METHOTREXATE

REACTIONS (2)
  - Cytokine release syndrome [None]
  - Neurotoxicity [None]

NARRATIVE: CASE EVENT DATE: 20220816
